FAERS Safety Report 7417101-6 (Version None)
Quarter: 2011Q2

REPORT INFORMATION
  Report Type: 
  Country: None (occurrence: None)
  Receive Date: 20110415
  Receipt Date: 20110412
  Transmission Date: 20111010
  Serious: Yes (Death, Other)
  Sender: FDA-Public Use
  Company Number: US-SANOFI-AVENTIS-2011SA019180

PATIENT
  Age: 72 Year
  Sex: Male
  Weight: 79 kg

DRUGS (4)
  1. PLAVIX [Suspect]
     Route: 048
     Dates: start: 20030501, end: 20040521
  2. VALSARTAN [Concomitant]
     Indication: BLOOD PRESSURE
     Dosage: 160/25 DAILY
  3. TOPROL-XL [Concomitant]
     Indication: BLOOD PRESSURE
  4. ALTOCOR [Concomitant]
     Indication: LOW DENSITY LIPOPROTEIN

REACTIONS (2)
  - MYOCARDIAL INFARCTION [None]
  - TRANSIENT ISCHAEMIC ATTACK [None]
